FAERS Safety Report 7231753-5 (Version None)
Quarter: 2011Q1

REPORT INFORMATION
  Report Type: 
  Country: None (occurrence: None)
  Receive Date: 20110107
  Receipt Date: 20101222
  Transmission Date: 20110831
  Serious: Yes (Life-Threatening, Hospitalization, Disabling, Other)
  Sender: FDA-Public Use
  Company Number: DSA_44379_2010

PATIENT
  Age: 39 Year
  Sex: Male
  Weight: 100 kg

DRUGS (7)
  1. NICARDIPINE HYDROCHLORIDE [Suspect]
     Indication: HYPERTENSION
     Dosage: (DF)
  2. NICARDIPINE HYDROCHLORIDE [Suspect]
     Indication: TACHYCARDIA
     Dosage: (DF)
  3. DILTIAZEM HYDROCHLORIDE [Suspect]
     Indication: HYPERTENSION
     Dosage: (DF PARENTERAL)
     Route: 051
  4. DILTIAZEM HYDROCHLORIDE [Suspect]
     Indication: TACHYCARDIA
     Dosage: (DF PARENTERAL)
     Route: 051
  5. MIDAZOLAM HCL [Suspect]
     Indication: TACHYCARDIA
     Dosage: (DF PARENTERAL)
     Route: 051
  6. MIDAZOLAM HCL [Suspect]
     Indication: HYPERTENSION
     Dosage: (DF PARENTERAL)
     Route: 051
  7. ANAESTHETICS (ANAESTHETICS) [Suspect]
     Indication: PRODUCT USED FOR UNKNOWN INDICATION
     Dosage: (DF)

REACTIONS (10)
  - TOXICITY TO VARIOUS AGENTS [None]
  - MENTAL IMPAIRMENT [None]
  - ELECTROCARDIOGRAM P WAVE ABNORMAL [None]
  - MULTI-ORGAN FAILURE [None]
  - OXYGEN SATURATION DECREASED [None]
  - CARDIAC ARREST [None]
  - BRADYCARDIA [None]
  - DRUG INTERACTION [None]
  - CONTINUOUS HAEMODIAFILTRATION [None]
  - BLOOD PRESSURE DECREASED [None]
